FAERS Safety Report 22529224 (Version 1)
Quarter: 2023Q2

REPORT INFORMATION
  Report Type: Spontaneous
  Country: CA (occurrence: CA)
  Receive Date: 20230607
  Receipt Date: 20230607
  Transmission Date: 20230722
  Serious: Yes (Hospitalization)
  Sender: FDA-Public Use
  Company Number: None

PATIENT
  Age: 32 Year
  Sex: Female

DRUGS (1)
  1. MONOFERRIC [Suspect]
     Active Substance: FERRIC DERISOMALTOSE
     Indication: Anaemia
     Route: 050

REACTIONS (6)
  - Chest discomfort [Unknown]
  - Dizziness [Unknown]
  - Dysphagia [Unknown]
  - Dyspnoea [Unknown]
  - Eye movement disorder [Unknown]
  - Flushing [Unknown]
